FAERS Safety Report 7597415-X (Version None)
Quarter: 2011Q3

REPORT INFORMATION
  Report Type: 
  Country: None (occurrence: None)
  Receive Date: 20110708
  Receipt Date: 20110627
  Transmission Date: 20111222
  Serious: Yes (Hospitalization)
  Sender: FDA-Public Use
  Company Number: PHHY2011US52285

PATIENT
  Sex: Female
  Weight: 183 kg

DRUGS (1)
  1. RECLAST [Suspect]
     Indication: OSTEOPOROSIS
     Dosage: 5 MG /100ML YEARLY
     Route: 042
     Dates: start: 20110531

REACTIONS (6)
  - ARTHRALGIA [None]
  - HALLUCINATION, VISUAL [None]
  - CHEST PAIN [None]
  - INFLUENZA LIKE ILLNESS [None]
  - PYREXIA [None]
  - PAIN [None]
